FAERS Safety Report 10590765 (Version 4)
Quarter: 2015Q1

REPORT INFORMATION
  Report Type: Spontaneous
  Country: FR (occurrence: FR)
  Receive Date: 20141118
  Receipt Date: 20150223
  Transmission Date: 20150720
  Serious: Yes (Hospitalization)
  Sender: FDA-Public Use
  Company Number: FR-B.I. PHARMACEUTICALS,INC./RIDGEFIELD-2014-BI-54826FF

PATIENT
  Age: 82 Year
  Sex: Female

DRUGS (9)
  1. PRADAXA [Suspect]
     Active Substance: DABIGATRAN ETEXILATE MESYLATE
     Indication: PRODUCT USED FOR UNKNOWN INDICATION
     Dosage: 220 MG
     Route: 048
  2. TANAKAN [Suspect]
     Active Substance: GINKGO
     Indication: PRODUCT USED FOR UNKNOWN INDICATION
     Dosage: 80 MG
     Route: 048
  3. MUCOMYSTENDO [Suspect]
     Active Substance: ACETYLCYSTEINE
     Indication: LUNG DISORDER
     Dosage: 3 ANZ
     Route: 048
     Dates: start: 20141006
  4. CEFTRIAXONE. [Suspect]
     Active Substance: CEFTRIAXONE
     Indication: LUNG DISORDER
     Dosage: 1 ANZ
     Route: 042
     Dates: start: 20141002
  5. IPRATROPIUM (BROMIDE OF) ARROW [Suspect]
     Active Substance: IPRATROPIUM
     Indication: LUNG DISORDER
     Dosage: 3 ANZ
     Route: 055
     Dates: start: 20141003
  6. FLECAINE [Suspect]
     Active Substance: FLECAINIDE
     Indication: ATRIAL FIBRILLATION
     Dosage: 100 MG
     Route: 048
  7. INEXIUM [Suspect]
     Active Substance: ESOMEPRAZOLE
     Indication: ABDOMINAL PAIN UPPER
     Dosage: 80 MG
     Route: 048
     Dates: start: 20141007, end: 20141012
  8. GAVISCON [Suspect]
     Active Substance: ALUMINUM HYDROXIDE\MAGNESIUM CARBONATE
     Indication: PRODUCT USED FOR UNKNOWN INDICATION
     Dosage: 3 ANZ
     Route: 048
     Dates: start: 20141007, end: 20141012
  9. TERBUTALINE ARROW [Suspect]
     Active Substance: TERBUTALINE
     Indication: LUNG DISORDER
     Dosage: 3 ANZ
     Route: 055
     Dates: start: 20141003

REACTIONS (3)
  - Cough [Not Recovered/Not Resolved]
  - Eosinophilia [Not Recovered/Not Resolved]
  - Lung disorder [Not Recovered/Not Resolved]

NARRATIVE: CASE EVENT DATE: 20141002
